FAERS Safety Report 7298602-0 (Version None)
Quarter: 2011Q1

REPORT INFORMATION
  Report Type: 
  Country: None (occurrence: None)
  Receive Date: 20110217
  Receipt Date: 20110211
  Transmission Date: 20110831
  Serious: Yes (Hospitalization)
  Sender: FDA-Public Use
  Company Number: GB-JNJFOC-HOAFF43040

PATIENT
  Age: 73 Year
  Sex: Female

DRUGS (4)
  1. MICONAZOLE [Suspect]
     Route: 048
  2. MICONAZOLE [Suspect]
     Indication: ILL-DEFINED DISORDER
     Route: 048
  3. WARFARIN [Interacting]
     Indication: VENOUS THROMBOSIS
     Route: 065
  4. WARFARIN [Interacting]
     Indication: PULMONARY EMBOLISM
     Route: 065

REACTIONS (2)
  - DRUG INTERACTION [None]
  - HAEMATOMA [None]
